FAERS Safety Report 5463521-9 (Version None)
Quarter: 2007Q3

REPORT INFORMATION
  Report Type: 
  Country: None (occurrence: None)
  Receive Date: 20070920
  Receipt Date: 20070912
  Transmission Date: 20080115
  Serious: Yes (Other)
  Sender: FDA-Public Use
  Company Number: US-SHR-US-2007-027905

PATIENT
  Age: 31 Year
  Sex: Female
  Weight: 76.6 kg

DRUGS (1)
  1. MIRENA [Suspect]
     Indication: CONTRACEPTION
     Dosage: 20 A?G/DAY, CONT
     Route: 015
     Dates: start: 20070702

REACTIONS (2)
  - PAIN IN EXTREMITY [None]
  - THROMBOPHLEBITIS SUPERFICIAL [None]
